FAERS Safety Report 18467064 (Version 1)
Quarter: 2020Q4

REPORT INFORMATION
  Report Type: Spontaneous
  Country: US (occurrence: US)
  Receive Date: 20201105
  Receipt Date: 20201105
  Transmission Date: 20210114
  Serious: Yes (Other)
  Sender: FDA-Public Use
  Company Number: US-BION-008949

PATIENT
  Age: 44 Year
  Sex: Female
  Weight: 56.7 kg

DRUGS (2)
  1. BION PHARMA^S DOFETILIDE UNKNOWN [Suspect]
     Active Substance: DOFETILIDE
     Indication: ATRIAL FIBRILLATION
     Dosage: TWICE S DAY
     Dates: start: 20200120
  2. LEXAPRO [Concomitant]
     Active Substance: ESCITALOPRAM OXALATE
     Dosage: 10MG EVERYDAY

REACTIONS (13)
  - Insomnia [Unknown]
  - Atrial fibrillation [Unknown]
  - Pain in extremity [Unknown]
  - Supraventricular extrasystoles [Unknown]
  - Malaise [Unknown]
  - Atrial flutter [Unknown]
  - Ventricular extrasystoles [Unknown]
  - Headache [Unknown]
  - Abdominal discomfort [Unknown]
  - Tension [Unknown]
  - Back pain [Unknown]
  - Memory impairment [Unknown]
  - Fatigue [Unknown]
